FAERS Safety Report 10205672 (Version 1)
Quarter: 2014Q2

REPORT INFORMATION
  Report Type: Spontaneous
  Country: FR (occurrence: FR)
  Receive Date: 20140530
  Receipt Date: 20140530
  Transmission Date: 20141212
  Serious: Yes (Hospitalization)
  Sender: FDA-Public Use
  Company Number: FR-AMGEN-FRASP2014038486

PATIENT
  Age: 77 Year
  Sex: Male

DRUGS (6)
  1. ARANESP [Suspect]
     Indication: PRODUCT USED FOR UNKNOWN INDICATION
     Dosage: UNK
     Route: 058
  2. AVASTIN                            /00848101/ [Concomitant]
     Dosage: 25 MG/ML (5 MG/KG), UNK
     Route: 065
     Dates: start: 20140318, end: 20140401
  3. FOLFIRI [Concomitant]
     Dosage: UNK
     Route: 065
     Dates: start: 20140318
  4. FLUORO URACILE [Concomitant]
     Dosage: UNK
     Route: 042
  5. IRINOTECAN ACCORD [Concomitant]
     Dosage: UNK
     Route: 042
  6. COUMADINE [Concomitant]
     Route: 065

REACTIONS (1)
  - Peripheral ischaemia [Recovering/Resolving]
